FAERS Safety Report 5398735-X (Version None)
Quarter: 2007Q3

REPORT INFORMATION
  Report Type: 
  Country: None (occurrence: None)
  Receive Date: 20070726
  Receipt Date: 20061120
  Transmission Date: 20080115
  Serious: No
  Sender: FDA-Public Use
  Company Number: US-AMGEN-US200832

PATIENT
  Age: 48 Year
  Sex: Male

DRUGS (9)
  1. EPOGEN [Suspect]
     Indication: DIALYSIS
     Route: 058
     Dates: start: 20060501
  2. SENSIPAR [Concomitant]
     Indication: HYPERPARATHYROIDISM SECONDARY
     Route: 065
  3. TOPROL-XL [Concomitant]
     Route: 065
  4. PREVACID [Concomitant]
     Route: 065
  5. MAGNESIUM OXIDE [Concomitant]
     Route: 065
  6. LASIX [Concomitant]
     Route: 065
  7. AVAPRO [Concomitant]
     Route: 065
  8. RENAX [Concomitant]
     Route: 065
  9. NORVASC [Concomitant]
     Route: 065

REACTIONS (2)
  - BLOOD PARATHYROID HORMONE INCREASED [None]
  - HAEMOGLOBIN DECREASED [None]
